FAERS Safety Report 17875059 (Version 1)
Quarter: 2020Q2

REPORT INFORMATION
  Report Type: Spontaneous
  Country: US (occurrence: US)
  Receive Date: 20200609
  Receipt Date: 20200609
  Transmission Date: 20200714
  Serious: Yes (Other)
  Sender: FDA-Public Use
  Company Number: NVSC2020US154248

PATIENT
  Age: 13 Year
  Sex: Male

DRUGS (3)
  1. LISDEXAMFETAMINE [Interacting]
     Active Substance: LISDEXAMFETAMINE
     Indication: ATTENTION DEFICIT HYPERACTIVITY DISORDER
     Dosage: UNK
     Route: 065
  2. QUETIAPINE. [Suspect]
     Active Substance: QUETIAPINE
     Indication: SCHIZOAFFECTIVE DISORDER
     Dosage: UNK
     Route: 065
  3. OLANZAPINE. [Interacting]
     Active Substance: OLANZAPINE
     Indication: AGITATION
     Dosage: 5 MG
     Route: 065

REACTIONS (4)
  - Drug interaction [Unknown]
  - Product use in unapproved indication [Unknown]
  - Oculogyric crisis [Recovered/Resolved]
  - Dystonia [Recovered/Resolved]
